FAERS Safety Report 12342470 (Version 1)
Quarter: 2016Q2

REPORT INFORMATION
  Report Type: Spontaneous
  Country: US (occurrence: US)
  Receive Date: 20160506
  Receipt Date: 20160506
  Transmission Date: 20160815
  Serious: No
  Sender: FDA-Public Use
  Company Number: US-G+W LABORATORIES-1051586

PATIENT
  Age: 63 Year
  Sex: Female
  Weight: 72.73 kg

DRUGS (3)
  1. XANAX [Concomitant]
     Active Substance: ALPRAZOLAM
     Route: 048
  2. TYLENOL PM EXTRA STRENGTH [Concomitant]
     Active Substance: ACETAMINOPHEN\DIPHENHYDRAMINE HYDROCHLORIDE
     Route: 048
  3. HALOBETASOL PROPIONATE. [Suspect]
     Active Substance: HALOBETASOL PROPIONATE
     Indication: PSORIASIS
     Route: 061
     Dates: start: 20160331, end: 20160403

REACTIONS (9)
  - Ovarian disorder [Recovered/Resolved]
  - Insomnia [Recovered/Resolved]
  - Vulvovaginal mycotic infection [Recovered/Resolved]
  - Loose tooth [Not Recovered/Not Resolved]
  - Feeling jittery [Recovered/Resolved]
  - Eye pruritus [Recovered/Resolved]
  - Irritability [Recovered/Resolved]
  - Dysuria [Recovered/Resolved]
  - Nervousness [Recovered/Resolved]

NARRATIVE: CASE EVENT DATE: 20160403
